FAERS Safety Report 5848663-8 (Version None)
Quarter: 2008Q3

REPORT INFORMATION
  Report Type: 
  Country: None (occurrence: None)
  Receive Date: 20080818
  Receipt Date: 20080807
  Transmission Date: 20090109
  Serious: Yes (Other)
  Sender: FDA-Public Use
  Company Number: GB-ELI_LILLY_AND_COMPANY-GB200808001577

PATIENT
  Age: 50 Year
  Sex: Female
  Weight: 95 kg

DRUGS (5)
  1. CYMBALTA [Suspect]
     Indication: DEPRESSION
     Dosage: 60 MG, UNKNOWN
     Route: 048
     Dates: start: 20070807
  2. ARIPIPRAZOLE [Concomitant]
     Indication: PERSONALITY DISORDER
     Dosage: 30 MG, UNKNOWN
     Route: 048
     Dates: start: 20060101
  3. ATENOLOL [Concomitant]
     Indication: HYPERTENSION
     Dosage: 25 MG, UNKNOWN
     Route: 048
     Dates: start: 20060101
  4. LIOTHYRONINE SODIUM [Concomitant]
     Indication: HYPOTHYROIDISM
     Dosage: 40 UG, UNKNOWN
     Route: 048
     Dates: start: 20060101
  5. OMEPRAZOLE [Concomitant]
     Indication: HIATUS HERNIA
     Dosage: 40 MG, UNKNOWN
     Route: 048
     Dates: start: 20060101

REACTIONS (1)
  - RHINORRHOEA [None]
